FAERS Safety Report 26204339 (Version 1)
Quarter: 2025Q4

REPORT INFORMATION
  Report Type: Spontaneous
  Country: GB (occurrence: GB)
  Receive Date: 20251226
  Receipt Date: 20251226
  Transmission Date: 20260117
  Serious: Yes (Hospitalization, Other)
  Sender: BRISTOL-MYERS SQUIBB COMPANY
  Company Number: None

PATIENT
  Age: 81 Year
  Sex: Female
  Weight: 63 kg

DRUGS (9)
  1. APIXABAN [Suspect]
     Active Substance: APIXABAN
     Indication: Atrial fibrillation
     Route: 048
     Dates: end: 20250919
  2. RAMIPRIL [Concomitant]
     Active Substance: RAMIPRIL
     Indication: Product used for unknown indication
     Dosage: 10 MG TABLETS ONE TO BE TAKEN EACH DAY
  3. ACETAMINOPHEN [Concomitant]
     Active Substance: ACETAMINOPHEN
     Indication: Product used for unknown indication
     Dosage: TAKES 1 EVERY MORNING (OM)
  4. CINNARIZINE [Concomitant]
     Active Substance: CINNARIZINE
     Indication: Product used for unknown indication
     Dosage: 15 MG TABLETS TWO TO BE TAKEN UP TO THREE TIMES A DAY WHEN REQUIRED FOR SEVERE DIZZINESS NOT TAKING
  5. BETAHISTINE [Concomitant]
     Active Substance: BETAHISTINE
     Indication: Product used for unknown indication
     Dosage: 8 MG TABLETS ONE TO BE TAKEN THREE TIMES A DAY
  6. BETAMETHASONE [Concomitant]
     Active Substance: BETAMETHASONE
     Indication: Product used for unknown indication
     Dosage: 0.025% OINTMENT APPLY THINLY TO AFFECTED AREA (S) AS?DIRECTED WHEN REQUIRED, USES RARELY
  7. SIMVASTATIN [Concomitant]
     Active Substance: SIMVASTATIN
     Indication: Product used for unknown indication
     Dosage: 20 MG TABLETS ONE TO BE TAKEN DAILY EVERY NIGHT (NOCTE)
     Dates: start: 20250811
  8. ORANGE [Concomitant]
     Active Substance: ORANGE
     Indication: Product used for unknown indication
     Dosage: ORAL POWDER SACHETS 1-2 SACHETS / DAY- AIM FOR SOFT REGULAR STOOL MOST DAYS , TAKE AS REQUIRED (PRN)
     Route: 048
  9. BISOPROLOL [Concomitant]
     Active Substance: BISOPROLOL
     Indication: Product used for unknown indication
     Dosage: 2.5 MG TABLETS ONE TO BE TAKEN EACH DAY IN PLACE OF 5 MG

REACTIONS (3)
  - Basal ganglia haemorrhage [Unknown]
  - Hemiparesis [Unknown]
  - Cerebral haemorrhage [Unknown]

NARRATIVE: CASE EVENT DATE: 20250915
